FAERS Safety Report 21566040 (Version 3)
Quarter: 2022Q4

REPORT INFORMATION
  Report Type: Spontaneous
  Country: CA (occurrence: CA)
  Receive Date: 20221108
  Receipt Date: 20221122
  Transmission Date: 20230112
  Serious: Yes (Other)
  Sender: FDA-Public Use
  Company Number: CA-CELLTRION INC.-2022CA006709

PATIENT

DRUGS (13)
  1. INFLECTRA [Suspect]
     Active Substance: INFLIXIMAB-DYYB
     Indication: Sarcoidosis
     Dosage: 280 MG (3 MG/KG) AT 0,2,6 THEN EVERY 8 WEEKS
     Route: 042
     Dates: start: 20220303
  2. INFLECTRA [Suspect]
     Active Substance: INFLIXIMAB-DYYB
     Dosage: 280 MG (EQUIVALENT 3 MG/KG) AT 0,2,6 THEN EVERY 8 WEEKS
     Route: 042
     Dates: start: 20220303
  3. INFLECTRA [Suspect]
     Active Substance: INFLIXIMAB-DYYB
     Dosage: 280 MG (3 MG/KG) AT 0,2,6 THEN EVERY 8 WEEKS (WEEK 2)
     Route: 042
     Dates: start: 20220322
  4. INFLECTRA [Suspect]
     Active Substance: INFLIXIMAB-DYYB
     Dosage: 280 MG (EQUIVALENT  3 MG/KG) AT 0,2,6 THEN EVERY 8 WEEKS
     Route: 042
     Dates: start: 20220505
  5. INFLECTRA [Suspect]
     Active Substance: INFLIXIMAB-DYYB
     Dosage: 276 MG AT 0, 2, 6 THEN EVERY 8 WEEKS
     Route: 042
     Dates: start: 20220630
  6. INFLECTRA [Suspect]
     Active Substance: INFLIXIMAB-DYYB
     Dosage: 270 MG AT 0, 2, 6 THEN EVERY 8 WEEKS
     Route: 042
     Dates: start: 20220824
  7. INFLECTRA [Suspect]
     Active Substance: INFLIXIMAB-DYYB
     Dosage: 280 MG (3 MG/KG) AT 0,2,6 THEN EVERY 8 WEEKS
     Route: 042
     Dates: start: 20221114
  8. GABAPENTIN [Concomitant]
     Active Substance: GABAPENTIN
     Dosage: 100 MG
     Dates: start: 202207
  9. RAMIPRIL [Concomitant]
     Active Substance: RAMIPRIL
     Dosage: 5 MG
     Route: 048
     Dates: start: 202206
  10. RAMIPRIL [Concomitant]
     Active Substance: RAMIPRIL
     Dosage: 5 MG, DAILY
     Route: 048
     Dates: start: 202206
  11. RAMIPRIL [Concomitant]
     Active Substance: RAMIPRIL
     Dosage: 1 DF, DOSAGE INFORMATION NOT AVAILABLE
     Route: 048
     Dates: start: 202206
  12. RAMIPRIL [Concomitant]
     Active Substance: RAMIPRIL
     Dosage: 5 MG, 1X/DAY
     Route: 048
     Dates: start: 202206
  13. SUCRALFATE [Concomitant]
     Active Substance: SUCRALFATE
     Dosage: 1 G
     Dates: start: 202207

REACTIONS (11)
  - Sinusitis [Recovered/Resolved]
  - Ear infection [Recovered/Resolved]
  - Off label use [Unknown]
  - Inappropriate schedule of product administration [Unknown]
  - Incorrect dose administered [Unknown]
  - Weight decreased [Unknown]
  - Oedema peripheral [Unknown]
  - Pyrexia [Unknown]
  - Nasal congestion [Unknown]
  - Rhinorrhoea [Unknown]
  - Headache [Unknown]

NARRATIVE: CASE EVENT DATE: 20220101
